FAERS Safety Report 5930118-3 (Version None)
Quarter: 2008Q4

REPORT INFORMATION
  Report Type: 
  Country: None (occurrence: None)
  Receive Date: 20081024
  Receipt Date: 20081020
  Transmission Date: 20090506
  Serious: No
  Sender: FDA-Public Use
  Company Number: US-B.I. PHARMACEUTICALS,INC./RIDGEFIELD-2008-BP-16107BP

PATIENT
  Sex: Male

DRUGS (5)
  1. COMBIVENT [Suspect]
     Indication: CHRONIC OBSTRUCTIVE PULMONARY DISEASE
     Route: 048
     Dates: start: 20060101
  2. COMBIVENT [Suspect]
     Indication: EMPHYSEMA
  3. PRESCRIPTION MUCINEX STRENGTH [Concomitant]
  4. ASPIRIN [Concomitant]
  5. NAPROXEN [Concomitant]
     Indication: HEADACHE

REACTIONS (2)
  - DRUG INEFFECTIVE [None]
  - SEMEN VOLUME DECREASED [None]
